FAERS Safety Report 9230376 (Version 1)
Quarter: 2013Q1

REPORT INFORMATION
  Report Type: Spontaneous
  Country: US (occurrence: None)
  Receive Date: 20121019
  Receipt Date: 20121019
  Transmission Date: 20140127
  Serious: Yes (Other)
  Sender: FDA-Public Use
  Company Number: 2012P1044333

PATIENT
  Sex: Male

DRUGS (3)
  1. FENTANYL [Suspect]
     Indication: PAIN
     Dosage: 1 PATCH; Q72H;TDER
     Route: 062
  2. EXELON PATCH [Concomitant]
  3. NAMENDA [Concomitant]

REACTIONS (1)
  - Amnesia [None]
